FAERS Safety Report 25968448 (Version 2)
Quarter: 2025Q4

REPORT INFORMATION
  Report Type: Spontaneous
  Country: TR (occurrence: TR)
  Receive Date: 20251028
  Receipt Date: 20251107
  Transmission Date: 20260117
  Serious: Yes (Hospitalization)
  Sender: ASTELLAS
  Company Number: TR-ASTELLAS-2025-AER-058132

PATIENT
  Age: 51 Year
  Sex: Female

DRUGS (7)
  1. XOSPATA [Suspect]
     Active Substance: GILTERITINIB
     Indication: Acute myeloid leukaemia
     Route: 065
     Dates: start: 202209
  2. XOSPATA [Suspect]
     Active Substance: GILTERITINIB
     Indication: FLT3 gene mutation
     Route: 065
     Dates: start: 202304
  3. CYTARABINE\FLUDARABINE\GRANULOCYTE COLONY-STIMULATING FACTOR NOS\IDARU [Concomitant]
     Active Substance: CYTARABINE\FLUDARABINE\GRANULOCYTE COLONY-STIMULATING FACTOR NOS\IDARUBICIN
     Indication: Acute myeloid leukaemia
     Route: 065
     Dates: start: 202209
  4. CYTARABINE\FLUDARABINE\GRANULOCYTE COLONY-STIMULATING FACTOR NOS\IDARU [Concomitant]
     Active Substance: CYTARABINE\FLUDARABINE\GRANULOCYTE COLONY-STIMULATING FACTOR NOS\IDARUBICIN
     Indication: FLT3 gene mutation
  5. MIDOSTAURIN [Concomitant]
     Active Substance: MIDOSTAURIN
     Indication: Acute myeloid leukaemia
     Route: 065
     Dates: start: 202209
  6. MIDOSTAURIN [Concomitant]
     Active Substance: MIDOSTAURIN
     Indication: FLT3 gene mutation
  7. FluBu [Concomitant]
     Indication: Product used for unknown indication
     Route: 065
     Dates: start: 202210

REACTIONS (2)
  - Sepsis [Unknown]
  - Off label use [Unknown]

NARRATIVE: CASE EVENT DATE: 20221001
